FAERS Safety Report 15201162 (Version 4)
Quarter: 2019Q2

REPORT INFORMATION
  Report Type: Spontaneous
  Country: US (occurrence: US)
  Receive Date: 20180726
  Receipt Date: 20190513
  Transmission Date: 20190711
  Serious: No
  Sender: FDA-Public Use
  Company Number: US-PFIZER INC-2018299843

PATIENT
  Age: 68 Year
  Sex: Male

DRUGS (7)
  1. MOBIC [Concomitant]
     Active Substance: MELOXICAM
     Dosage: UNK
     Dates: start: 201804, end: 2018
  2. FOLIC ACID. [Concomitant]
     Active Substance: FOLIC ACID
     Dosage: UNK
     Dates: start: 200006
  3. VITAMIN B-6 [Concomitant]
     Active Substance: PYRIDOXINE
     Dosage: UNK
     Dates: start: 201805, end: 201808
  4. METHOTREXATE SODIUM. [Suspect]
     Active Substance: METHOTREXATE SODIUM
     Indication: PSORIATIC ARTHROPATHY
  5. VITAMIN B-6 [Concomitant]
     Active Substance: PYRIDOXINE
     Dosage: 100 MG, UNK
     Dates: start: 201804, end: 2018
  6. MOBIC [Concomitant]
     Active Substance: MELOXICAM
     Dosage: UNK
     Dates: start: 201805, end: 201808
  7. METHOTREXATE SODIUM. [Suspect]
     Active Substance: METHOTREXATE SODIUM
     Indication: PERIPHERAL SWELLING
     Dosage: UNK, WEEKLY (6-2.5 MG 1X/WK)
     Dates: start: 20180502, end: 20180522

REACTIONS (1)
  - Drug ineffective for unapproved indication [Unknown]

NARRATIVE: CASE EVENT DATE: 201805
